FAERS Safety Report 5312370-0 (Version None)
Quarter: 2007Q2

REPORT INFORMATION
  Report Type: 
  Country: None (occurrence: None)
  Receive Date: 20070430
  Receipt Date: 20070420
  Transmission Date: 20071010
  Serious: Yes (Other)
  Sender: FDA-Public Use
  Company Number: FR-MERCK-0704USA05532

PATIENT
  Age: 80 Year
  Sex: Female

DRUGS (4)
  1. ZOCOR [Suspect]
     Route: 048
     Dates: start: 20070301, end: 20070401
  2. ZOCOR [Suspect]
     Route: 048
     Dates: start: 19970101, end: 20070301
  3. SECTRAL [Concomitant]
     Route: 065
  4. ASPEGIC 1000 [Concomitant]
     Route: 065
     Dates: end: 20070401

REACTIONS (3)
  - GENERAL PHYSICAL CONDITION ABNORMAL [None]
  - PURPURA [None]
  - VASCULITIS NECROTISING [None]
